FAERS Safety Report 4506713-5 (Version None)
Quarter: 2004Q4

REPORT INFORMATION
  Report Type: 
  Country: None (occurrence: None)
  Receive Date: 20041117
  Receipt Date: 20041101
  Transmission Date: 20050328
  Serious: Yes (Hospitalization)
  Sender: FDA-Public Use
  Company Number: 199957

PATIENT
  Age: 45 Year
  Sex: Female
  Weight: 71.6683 kg

DRUGS (6)
  1. AVONEX [Suspect]
     Indication: MULTIPLE SCLEROSIS
     Dosage: 30 MCG QW IM
     Route: 030
     Dates: start: 20030401, end: 20030801
  2. AVONEX [Suspect]
     Indication: MULTIPLE SCLEROSIS
     Dosage: 30 MCG QW IM
     Route: 030
     Dates: start: 20030801
  3. DETROL - SLOW RELEASE [Concomitant]
  4. PROVERA [Concomitant]
  5. BACLOFEN [Concomitant]
  6. TRAZODONE HCL [Concomitant]

REACTIONS (16)
  - ARTHRALGIA [None]
  - BACK PAIN [None]
  - CONDITION AGGRAVATED [None]
  - CSF TEST ABNORMAL [None]
  - DIFFICULTY IN WALKING [None]
  - FALL [None]
  - FATIGUE [None]
  - INCISION SITE COMPLICATION [None]
  - INFLUENZA LIKE ILLNESS [None]
  - MULTIPLE SCLEROSIS [None]
  - NECK PAIN [None]
  - PAIN [None]
  - PARAESTHESIA [None]
  - PYREXIA [None]
  - TENDERNESS [None]
  - VASCULAR OCCLUSION [None]
